FAERS Safety Report 4473882-5 (Version None)
Quarter: 2004Q4

REPORT INFORMATION
  Report Type: 
  Country: None (occurrence: None)
  Receive Date: 20041008
  Receipt Date: 20041008
  Transmission Date: 20050328
  Serious: No
  Sender: FDA-Public Use
  Company Number: None

PATIENT

DRUGS (1)
  1. LAMISIL [Suspect]

REACTIONS (3)
  - DIARRHOEA [None]
  - DYSGEUSIA [None]
  - WEIGHT DECREASED [None]
